FAERS Safety Report 14157473 (Version 2)
Quarter: 2021Q1

REPORT INFORMATION
  Report Type: Report from Study
  Country: CR (occurrence: CR)
  Receive Date: 20171105
  Receipt Date: 20210130
  Transmission Date: 20210419
  Serious: Yes (Other)
  Sender: FDA-Public Use
  Company Number: PHHY2017CR162182

PATIENT
  Age: 78 Year
  Sex: Female

DRUGS (3)
  1. CO?DIOVAN [Suspect]
     Active Substance: HYDROCHLOROTHIAZIDE\VALSARTAN
     Dosage: 160 + 12.5 MG, (STARTED 2 OR 3 YEARS APPROXIMATELY)UNK
     Route: 065
  2. CO?DIOVAN [Suspect]
     Active Substance: HYDROCHLOROTHIAZIDE\VALSARTAN
     Indication: PRODUCT USED FOR UNKNOWN INDICATION
     Dosage: 80 + 12.5 MG, (STARTED 10 YEARS APPROXIMATELY)
     Route: 065
  3. CO?DIOVAN [Suspect]
     Active Substance: HYDROCHLOROTHIAZIDE\VALSARTAN
     Dosage: UNK
     Route: 065
     Dates: start: 20171031

REACTIONS (4)
  - Polyp [Unknown]
  - Colon cancer [Unknown]
  - Abdominal discomfort [Unknown]
  - Memory impairment [Unknown]
